FAERS Safety Report 17800625 (Version 1)
Quarter: 2020Q2

REPORT INFORMATION
  Report Type: Spontaneous
  Country: US (occurrence: US)
  Receive Date: 20200518
  Receipt Date: 20200518
  Transmission Date: 20200714
  Serious: Yes (Death, Other)
  Sender: FDA-Public Use
  Company Number: US-NAPPMUNDI-USA-2020-0152671

PATIENT
  Sex: Female

DRUGS (11)
  1. HYDROMORPHONE HCL (SIMILAR TO 19-892) [Suspect]
     Active Substance: HYDROMORPHONE HYDROCHLORIDE
     Indication: PRODUCT USED FOR UNKNOWN INDICATION
     Route: 048
  2. SERTRALINE [Suspect]
     Active Substance: SERTRALINE HYDROCHLORIDE
     Indication: PRODUCT USED FOR UNKNOWN INDICATION
     Dosage: 250 MG, DAILY
     Route: 065
  3. ACETAMINOPHEN. [Suspect]
     Active Substance: ACETAMINOPHEN
     Indication: BREAKTHROUGH PAIN
     Route: 065
  4. CARISOPRODOL. [Suspect]
     Active Substance: CARISOPRODOL
     Indication: BREAKTHROUGH PAIN
     Dosage: 350 MG, TID
     Route: 065
  5. OXYCODONE HYDROCHLORIDE (SIMILAR TO NDA 22-272) [Suspect]
     Active Substance: OXYCODONE HYDROCHLORIDE
     Indication: BACK PAIN
     Dosage: 40 MG, TID
     Route: 048
  6. DULOXETINE. [Suspect]
     Active Substance: DULOXETINE
     Indication: BREAKTHROUGH PAIN
     Route: 065
  7. OXYCODONE HYDROCHLORIDE (SIMILAR TO NDA 22-272) [Suspect]
     Active Substance: OXYCODONE HYDROCHLORIDE
     Dosage: 100 MG, QID
     Route: 048
  8. HYDROCODONE BITARTRATE (SIMILAR TO IND 59,175) [Suspect]
     Active Substance: HYDROCODONE BITARTRATE
     Indication: BREAKTHROUGH PAIN
     Route: 048
  9. CYCLOBENZAPRINE. [Suspect]
     Active Substance: CYCLOBENZAPRINE
     Indication: BACK PAIN
     Route: 065
  10. LIDOCAINE. [Suspect]
     Active Substance: LIDOCAINE
     Indication: BACK PAIN
     Route: 062
  11. PREGABALIN. [Suspect]
     Active Substance: PREGABALIN
     Indication: PRODUCT USED FOR UNKNOWN INDICATION
     Dosage: 75 MG, BID
     Route: 065

REACTIONS (7)
  - Unresponsive to stimuli [Unknown]
  - Drug tolerance increased [Unknown]
  - Drug dependence [Unknown]
  - Toxicity to various agents [Fatal]
  - Facet joint syndrome [Unknown]
  - Drug abuse [Unknown]
  - Spinal stenosis [Unknown]
